FAERS Safety Report 7535293-5 (Version None)
Quarter: 2011Q2

REPORT INFORMATION
  Report Type: 
  Country: None (occurrence: None)
  Receive Date: 20110609
  Receipt Date: 20080109
  Transmission Date: 20111010
  Serious: Yes (Death)
  Sender: FDA-Public Use
  Company Number: PHFR2008IE00502

PATIENT
  Sex: Male

DRUGS (1)
  1. CLOZAPINE [Suspect]
     Indication: SCHIZOPHRENIA
     Dosage: 650 MG,DAILY
     Route: 048
     Dates: start: 20021114

REACTIONS (3)
  - CARDIAC ARREST [None]
  - DYSPNOEA [None]
  - MUSCULOSKELETAL PAIN [None]
